FAERS Safety Report 14466822 (Version 2)
Quarter: 2018Q1

REPORT INFORMATION
  Report Type: Report from Study
  Country: CH (occurrence: CH)
  Receive Date: 20180131
  Receipt Date: 20180221
  Transmission Date: 20180509
  Serious: Yes (Other)
  Sender: FDA-Public Use
  Company Number: CH-ROCHE-2063438

PATIENT

DRUGS (1)
  1. ALTEPLASE. [Suspect]
     Active Substance: ALTEPLASE
     Indication: PELVIC VENOUS THROMBOSIS
     Dosage: 1 IN 15 HOUR
     Route: 065

REACTIONS (2)
  - Drug ineffective [Unknown]
  - Haemoglobinuria [Unknown]
